FAERS Safety Report 26122989 (Version 1)
Quarter: 2025Q4

REPORT INFORMATION
  Report Type: Spontaneous
  Country: CN (occurrence: CN)
  Receive Date: 20251204
  Receipt Date: 20251204
  Transmission Date: 20260117
  Serious: Yes (Other)
  Sender: PFIZER
  Company Number: CN-PFIZER INC-PV202500141355

PATIENT
  Age: 52 Year
  Sex: Female
  Weight: 55 kg

DRUGS (3)
  1. PACLITAXEL [Suspect]
     Active Substance: PACLITAXEL
     Indication: Breast cancer
     Dosage: 270 MG, 1X/DAY
     Route: 041
     Dates: start: 20250709, end: 20250709
  2. DEXAMETHASONE SODIUM PHOSPHATE [Concomitant]
     Active Substance: DEXAMETHASONE SODIUM PHOSPHATE
     Indication: Breast cancer
     Dosage: 10 MG, 1X/DAY
     Route: 042
     Dates: start: 20250709, end: 20250709
  3. AMIFOSTINE [Concomitant]
     Active Substance: AMIFOSTINE
     Indication: Breast cancer
     Dosage: 400 MG, 1X/DAY
     Route: 041
     Dates: start: 20250709, end: 20250709

REACTIONS (1)
  - Drug-induced liver injury [Recovering/Resolving]

NARRATIVE: CASE EVENT DATE: 20250722
